FAERS Safety Report 16952189 (Version 1)
Quarter: 2019Q4

REPORT INFORMATION
  Report Type: Spontaneous
  Country: US (occurrence: US)
  Receive Date: 20190904
  Receipt Date: 20190904
  Transmission Date: 20200122
  Serious: No
  Sender: FDA-Public Use
  Company Number: None

PATIENT
  Age: 73 Year
  Sex: Male

DRUGS (3)
  1. VERZENIO [Suspect]
     Active Substance: ABEMACICLIB
     Indication: BREAST CANCER MALE
     Route: 048
     Dates: start: 20180428
  2. VERZENIO [Suspect]
     Active Substance: ABEMACICLIB
     Indication: SQUAMOUS CELL CARCINOMA OF SKIN
     Route: 048
     Dates: start: 20180428
  3. VERZENIO [Suspect]
     Active Substance: ABEMACICLIB
     Indication: METASTASES TO LUNG
     Route: 048
     Dates: start: 20180428

REACTIONS (1)
  - Squamous cell carcinoma [None]

NARRATIVE: CASE EVENT DATE: 20190830
